FAERS Safety Report 6713790-X (Version None)
Quarter: 2010Q2

REPORT INFORMATION
  Report Type: 
  Country: None (occurrence: None)
  Receive Date: 20100506
  Receipt Date: 20100428
  Transmission Date: 20101027
  Serious: Yes (Disabling, Other)
  Sender: FDA-Public Use
  Company Number: GXKR2010US04809

PATIENT
  Age: 39 Year
  Sex: Female

DRUGS (7)
  1. AMANTADINE (NGX) [Interacting]
     Indication: TREMOR
     Dosage: 2100 MG, BID
  2. AMANTADINE (NGX) [Interacting]
     Indication: FATIGUE
     Dosage: 100 MG, DAILY
  3. FLUOXETINE [Suspect]
     Dosage: 20 MG/DAY
  4. TOPIRAMATE [Interacting]
     Indication: CONVULSION
     Dosage: 50 MG, BID
  5. BUPROPION HCL [Concomitant]
     Dosage: 100 MG/DAY
  6. GLATIRAMER ACETATE [Concomitant]
     Dosage: 20 MG DAILY
     Route: 058
  7. CLONAZEPAM [Concomitant]
     Dosage: 2 MG, DAILY

REACTIONS (3)
  - BLINDNESS [None]
  - CORNEAL OEDEMA [None]
  - VISUAL ACUITY REDUCED [None]
